FAERS Safety Report 19401861 (Version 1)
Quarter: 2021Q2

REPORT INFORMATION
  Report Type: Spontaneous
  Country: TR (occurrence: TR)
  Receive Date: 20210610
  Receipt Date: 20210610
  Transmission Date: 20210717
  Serious: No
  Sender: FDA-Public Use
  Company Number: TR-LUPIN PHARMACEUTICALS INC.-2021-09135

PATIENT
  Age: 46 Year
  Sex: Female

DRUGS (3)
  1. METHYLPREDNISOLONE. [Suspect]
     Active Substance: METHYLPREDNISOLONE
     Indication: FAT EMBOLISM SYNDROME
     Dosage: 40 MILLIGRAM
     Route: 042
  2. HYALURONIC ACID [Concomitant]
     Active Substance: HYALURONIC ACID
     Indication: GLUTEOPLASTY
     Dosage: UNK, FILLER INJECTION IN TO HER BUTTOCKS FEW HOURS PRIOR TO ADMISSION. SHE HAD RECEIVED HYALURONIC A
     Route: 065
  3. ENOXAPARIN [Suspect]
     Active Substance: ENOXAPARIN
     Indication: FAT EMBOLISM SYNDROME
     Dosage: 6000 INTERNATIONAL UNIT, (60MG)/0.6
     Route: 058

REACTIONS (1)
  - Off label use [Unknown]
